FAERS Safety Report 6624472-7 (Version None)
Quarter: 2010Q1

REPORT INFORMATION
  Report Type: 
  Country: None (occurrence: None)
  Receive Date: 20100310
  Receipt Date: 20091021
  Transmission Date: 20100710
  Serious: No
  Sender: FDA-Public Use
  Company Number: US-BIOGENIDEC-2009BI033814

PATIENT
  Sex: Female

DRUGS (4)
  1. AVONEX [Suspect]
     Indication: MULTIPLE SCLEROSIS
     Route: 030
     Dates: start: 20030101, end: 20050101
  2. ALEVE (CAPLET) [Concomitant]
     Indication: PREMEDICATION
  3. ADVIL LIQUI-GELS [Concomitant]
     Indication: PREMEDICATION
  4. TYLENOL-500 [Concomitant]
     Indication: PREMEDICATION

REACTIONS (4)
  - ASTHENIA [None]
  - COGNITIVE DISORDER [None]
  - GAIT DISTURBANCE [None]
  - INFLUENZA LIKE ILLNESS [None]
